FAERS Safety Report 23602966 (Version 2)
Quarter: 2024Q3

REPORT INFORMATION
  Report Type: Report from Study
  Country: GB (occurrence: GB)
  Receive Date: 20240306
  Receipt Date: 20240719
  Transmission Date: 20241017
  Serious: Yes (Hospitalization)
  Sender: ABBVIE
  Company Number: GB-ABBVIE-5608270

PATIENT
  Age: 65 Year
  Sex: Male

DRUGS (3)
  1. RINVOQ [Suspect]
     Active Substance: UPADACITINIB
     Indication: Ankylosing spondylitis
     Dosage: FORM STRENGTH: 15 MILLIGRAM
     Route: 048
     Dates: end: 20231218
  2. RINVOQ [Suspect]
     Active Substance: UPADACITINIB
     Indication: Ankylosing spondylitis
     Dosage: FORM STRENGTH: 15 MILLIGRAM
     Route: 048
     Dates: start: 20240215, end: 20240301
  3. RINVOQ [Suspect]
     Active Substance: UPADACITINIB
     Indication: Ankylosing spondylitis
     Dosage: FIRST ADMIN DATE: 2024, FORM STRENGTH: 15 MILLIGRAM
     Route: 048

REACTIONS (3)
  - Influenza [Unknown]
  - Pneumonia [Unknown]
  - Unevaluable event [Unknown]

NARRATIVE: CASE EVENT DATE: 20231201
